FAERS Safety Report 15028047 (Version 1)
Quarter: 2018Q2

REPORT INFORMATION
  Report Type: Report from Study
  Country: BR (occurrence: BR)
  Receive Date: 20180619
  Receipt Date: 20180619
  Transmission Date: 20180711
  Serious: Yes (Hospitalization)
  Sender: FDA-Public Use
  Company Number: BR-ACTELION-A-CH2018-174003

PATIENT
  Age: 5 Year
  Sex: Female
  Weight: 10 kg

DRUGS (4)
  1. ZAVESCA [Suspect]
     Active Substance: MIGLUSTAT
     Dosage: 100 MG, QD
     Route: 048
  2. ZAVESCA [Suspect]
     Active Substance: MIGLUSTAT
     Indication: PRODUCT USED FOR UNKNOWN INDICATION
     Dosage: 200 MG, QD
     Route: 048
     Dates: end: 201803
  3. ZAVESCA [Suspect]
     Active Substance: MIGLUSTAT
     Dosage: 200 MG, QD
     Route: 048
     Dates: start: 20180611
  4. ZAVESCA [Suspect]
     Active Substance: MIGLUSTAT
     Dosage: 200 MG, QD
     Route: 048
     Dates: start: 2015

REACTIONS (5)
  - Diarrhoea [Unknown]
  - Gastrostomy [Unknown]
  - Abdominal pain [Unknown]
  - Constipation [Unknown]
  - Product supply issue [Recovered/Resolved]

NARRATIVE: CASE EVENT DATE: 201801
